FAERS Safety Report 8512585-4 (Version None)
Quarter: 2012Q3

REPORT INFORMATION
  Report Type: 
  Country: None (occurrence: None)
  Receive Date: 20120716
  Receipt Date: 20120710
  Transmission Date: 20120928
  Serious: Yes (Hospitalization, Other)
  Sender: FDA-Public Use
  Company Number: JP-BRISTOL-MYERS SQUIBB COMPANY-16539686

PATIENT
  Age: 47 Year
  Sex: Male
  Weight: 79 kg

DRUGS (12)
  1. ARIPIPRAZOLE [Suspect]
     Indication: SCHIZOPHRENIA
     Dosage: INJ
     Route: 065
     Dates: start: 20111212, end: 20120402
  2. ABILIFY [Suspect]
     Indication: SCHIZOPHRENIA
     Dosage: 07AUG07-26SEP11;12MG,27SEP11-02OCT11;24MG,03OCT11-12APR12;193D
     Route: 048
     Dates: start: 20070807, end: 20120412
  3. PLACEBO [Suspect]
  4. DIOVAN [Concomitant]
     Indication: HYPERTENSION
     Dosage: TABS
     Route: 048
     Dates: start: 20110509
  5. FAMOTIDINE [Concomitant]
     Dates: start: 20111024, end: 20111107
  6. CLEANAL [Concomitant]
     Dates: start: 20120412, end: 20120412
  7. MUCOSTA [Concomitant]
     Indication: GASTRITIS
     Dosage: TAB
     Route: 048
     Dates: start: 20060322, end: 20120415
  8. OLOPATADINE HCL [Concomitant]
     Dates: start: 20120412, end: 20120412
  9. ONON [Concomitant]
     Dates: start: 20120412, end: 20120412
  10. LIVOSTIN [Concomitant]
     Dosage: NASAL DROPS
     Route: 045
     Dates: start: 20120412, end: 20120412
  11. CALSLOT [Concomitant]
     Indication: HYPERTENSION
     Dosage: TABS
     Route: 048
     Dates: start: 20111226
  12. RISPERDAL [Concomitant]
     Dates: start: 20070807, end: 20111016

REACTIONS (2)
  - WITHDRAWAL SYNDROME [None]
  - NEUROLEPTIC MALIGNANT SYNDROME [None]
